FAERS Safety Report 11635460 (Version 1)
Quarter: 2015Q4

REPORT INFORMATION
  Report Type: Spontaneous
  Country: US (occurrence: US)
  Receive Date: 20151016
  Receipt Date: 20151016
  Transmission Date: 20160304
  Serious: No
  Sender: FDA-Public Use
  Company Number: US-009507513-1510USA004981

PATIENT
  Age: 16 Year
  Sex: Female
  Weight: 81.63 kg

DRUGS (1)
  1. IMPLANON [Suspect]
     Active Substance: ETONOGESTREL
     Indication: MENSTRUAL CYCLE MANAGEMENT
     Dosage: UNKNOWN
     Route: 059
     Dates: start: 20110616

REACTIONS (2)
  - Incorrect drug administration duration [Unknown]
  - Product use issue [Unknown]

NARRATIVE: CASE EVENT DATE: 20110616
